FAERS Safety Report 7029812 (Version 10)
Quarter: 2012Q4

REPORT INFORMATION
  Report Type: Report from Study
  Country: JP (occurrence: JP)
  Receive Date: 20090622
  Receipt Date: 20120914
  Transmission Date: 20130627
  Serious: Yes (Hospitalization, Other)
  Sender: FDA-Public Use
  Company Number: PHHY2009JP22845

PATIENT
  Age: 75 Year
  Sex: Male

DRUGS (12)
  1. AMN107 [Suspect]
     Indication: CHRONIC MYELOID LEUKAEMIA
     Dosage: 400 mg/day
     Route: 048
     Dates: start: 20090408, end: 20090507
  2. AMN107 [Suspect]
     Dosage: 200 mg/day
     Route: 048
     Dates: start: 20090522, end: 20090813
  3. AMN107 [Suspect]
     Dosage: 200 mg, daily
     Route: 048
     Dates: end: 20110116
  4. AMN107 [Suspect]
     Dosage: 200 mg, daily
     Dates: start: 20110722, end: 20110910
  5. PREDONINE [Concomitant]
     Indication: INTERSTITIAL LUNG DISEASE
     Dosage: 5 mg, UNK
     Route: 048
  6. PREDONINE [Concomitant]
     Dosage: 4 mg, UNK
     Route: 048
  7. PREDONINE [Concomitant]
     Dosage: 2.5 mg, UNK
     Route: 048
     Dates: end: 20110822
  8. ZYLORIC [Concomitant]
     Indication: HYPERURICAEMIA
     Dosage: 100 mg, UNK
     Route: 048
  9. GASLON [Concomitant]
     Indication: GASTRITIS
     Dosage: 4 mg, UNK
     Route: 048
  10. URALYT [Concomitant]
     Indication: HYPERURICAEMIA
     Dosage: 2 DF, UNK
     Route: 048
  11. SUMIFERON [Concomitant]
     Indication: CHRONIC MYELOID LEUKAEMIA
     Dosage: 3 MIU, UNK
     Route: 042
     Dates: start: 20060712, end: 20070206
  12. LENDORMIN [Concomitant]
     Indication: INSOMNIA
     Dosage: 0.25 mg, UNK
     Route: 048

REACTIONS (5)
  - Arrhythmia [Recovered/Resolved]
  - Condition aggravated [Recovered/Resolved]
  - Electrocardiogram QT prolonged [Recovered/Resolved]
  - Atrial fibrillation [Recovered/Resolved]
  - Pneumonia [Recovered/Resolved]
